FAERS Safety Report 20124814 (Version 1)
Quarter: 2021Q4

REPORT INFORMATION
  Report Type: Spontaneous
  Country: US (occurrence: None)
  Receive Date: 20211126
  Receipt Date: 20211126
  Transmission Date: 20220303
  Serious: No
  Sender: FDA-Public Use
  Company Number: None

PATIENT
  Age: 62 Year
  Sex: Female
  Weight: 107.1 kg

DRUGS (11)
  1. SECRET ANTIPERSPIRANT/DEODORANT POWDER FRESH [Suspect]
     Active Substance: ALUMINUM ZIRCONIUM TRICHLOROHYDREX GLY
     Indication: Personal hygiene
     Dates: start: 20211001, end: 20211126
  2. EFFEXOR [Concomitant]
     Active Substance: VENLAFAXINE HYDROCHLORIDE
  3. PHENTERMINE [Concomitant]
  4. TOPRAMITE [Concomitant]
  5. VITAMIN C [Concomitant]
     Active Substance: ASCORBIC ACID
  6. VITAMIN D NOS [Concomitant]
     Active Substance: VITAMIN D NOS
  7. VITAMIN B12 [Concomitant]
     Active Substance: CYANOCOBALAMIN
  8. ZINC [Concomitant]
     Active Substance: ZINC
  9. FISH OIL [Concomitant]
  10. ELDERBERRY [Concomitant]
  11. BIOTIN [Concomitant]
     Active Substance: BIOTIN

REACTIONS (2)
  - Headache [None]
  - Recalled product administered [None]

NARRATIVE: CASE EVENT DATE: 20211001
